FAERS Safety Report 9976018 (Version 2)
Quarter: 2014Q1

REPORT INFORMATION
  Report Type: Spontaneous
  Country: US (occurrence: US)
  Receive Date: 20140306
  Receipt Date: 20140306
  Transmission Date: 20141002
  Serious: Yes (Disabling)
  Sender: FDA-Public Use
  Company Number: US-GE HEALTHCARE MEDICAL DIAGNOSTICS-OSCN-PR-0804S-0230

PATIENT
  Age: 62 Year
  Sex: Female

DRUGS (2)
  1. OMNISCAN [Suspect]
     Indication: PRODUCT USED FOR UNKNOWN INDICATION
     Route: 042
     Dates: start: 20060728, end: 20060728
  2. OMNISCAN [Suspect]
     Route: 042
     Dates: start: 20060814, end: 20060814

REACTIONS (1)
  - Nephrogenic systemic fibrosis [Not Recovered/Not Resolved]
